FAERS Safety Report 4751710-8 (Version None)
Quarter: 2005Q3

REPORT INFORMATION
  Report Type: 
  Country: None (occurrence: None)
  Receive Date: 20050822
  Receipt Date: 20050808
  Transmission Date: 20060218
  Serious: Yes (Other)
  Sender: FDA-Public Use
  Company Number: B0390157A

PATIENT
  Age: 24 Year
  Sex: Female

DRUGS (3)
  1. TRIFLUPERAZINE HYDROCHLORIDE (FORMULATION UNKNOWN) (TRIFLUPERAZINE HCL [Suspect]
  2. FLUOXETINE [Suspect]
  3. MECLOZINE (MECOLOZINE) [Suspect]

REACTIONS (2)
  - ABORTION SPONTANEOUS [None]
  - DRUG EXPOSURE DURING PREGNANCY [None]
